FAERS Safety Report 21363453 (Version 4)
Quarter: 2022Q4

REPORT INFORMATION
  Report Type: Report from Study
  Country: CA (occurrence: CA)
  Receive Date: 20220922
  Receipt Date: 20221228
  Transmission Date: 20230112
  Serious: Yes (Hospitalization, Other)
  Sender: FDA-Public Use
  Company Number: CA-TAKEDA-2022TUS057300

PATIENT
  Age: 85 Year
  Sex: Female

DRUGS (3)
  1. IXAZOMIB [Suspect]
     Active Substance: IXAZOMIB
     Indication: Lymphoplasmacytoid lymphoma/immunocytoma refractory
     Dosage: 3 MILLIGRAM
     Route: 048
     Dates: start: 20220805
  2. DEXAMETHASONE [Suspect]
     Active Substance: DEXAMETHASONE
     Indication: Lymphoplasmacytoid lymphoma/immunocytoma refractory
     Dosage: UNK
     Route: 065
     Dates: start: 20220805
  3. AMLODIPINE [Concomitant]
     Active Substance: AMLODIPINE BESYLATE
     Dosage: UNK
     Route: 065

REACTIONS (7)
  - Cardiac failure [Unknown]
  - Pneumonia [Unknown]
  - COVID-19 [Recovering/Resolving]
  - Asthenia [Unknown]
  - Vision blurred [Unknown]
  - Peripheral swelling [Unknown]
  - Off label use [Unknown]

NARRATIVE: CASE EVENT DATE: 20220906
